FAERS Safety Report 9133452 (Version 2)
Quarter: 2013Q1

REPORT INFORMATION
  Report Type: Report from Study
  Country: US (occurrence: US)
  Receive Date: 20130301
  Receipt Date: 20130318
  Transmission Date: 20140127
  Serious: Yes (Death, Hospitalization, Other)
  Sender: FDA-Public Use
  Company Number: US-ASTRAZENECA-2012SE93613

PATIENT
  Age: 33 Year
  Sex: Male
  Weight: 158.8 kg

DRUGS (4)
  1. SEROQUEL [Suspect]
     Indication: BIPOLAR DISORDER
     Route: 048
     Dates: start: 2008
  2. LISINOPRIL [Interacting]
     Indication: HYPERTENSION
     Route: 048
  3. UNSPECIFIED OTHER MEDICATION [Interacting]
     Route: 065
  4. CELEXA [Concomitant]
     Indication: DEPRESSION
     Route: 048

REACTIONS (8)
  - Overdose [Unknown]
  - Drug interaction [Unknown]
  - Abnormal weight gain [Unknown]
  - Gun shot wound [Fatal]
  - Somnambulism [Unknown]
  - Sleep-related eating disorder [Unknown]
  - Memory impairment [Unknown]
  - Hypertension [Unknown]
